FAERS Safety Report 18866948 (Version 1)
Quarter: 2021Q1

REPORT INFORMATION
  Report Type: Spontaneous
  Country: DE (occurrence: DE)
  Receive Date: 20210209
  Receipt Date: 20210209
  Transmission Date: 20210420
  Serious: Yes (Other)
  Sender: FDA-Public Use
  Company Number: DE-MYLANLABS-2021M1006973

PATIENT
  Age: 58 Year
  Sex: Female
  Weight: 106 kg

DRUGS (9)
  1. DESLORATADIN [Concomitant]
     Active Substance: DESLORATADINE
     Dosage: 5 MILLIGRAM, QD (0?0?1)
  2. FORMOTEROL [Concomitant]
     Active Substance: FORMOTEROL
     Dosage: 1 DOSAGE FORM, BID (1 STROKE IN THE MORNING AND 1 STROKE IN THE EVENING)
     Route: 055
  3. CANDESARTAN COMP. [Concomitant]
     Active Substance: CANDESARTAN CILEXETIL\HYDROCHLOROTHIAZIDE
     Dosage: 0.5 DOSAGE FORM (0?0?1/2)
  4. NOVOPULMON NOVOLIZER [Suspect]
     Active Substance: BUDESONIDE
     Indication: PRODUCT USED FOR UNKNOWN INDICATION
     Dosage: 1 DOSAGE FORM, TOTAL (1 STROKE, ONCE AT 6.00 P.M.)
     Route: 055
     Dates: start: 20201202
  5. MOMETASONE FUROATE. [Concomitant]
     Active Substance: MOMETASONE FUROATE
     Dosage: 1 SPRAY PER NOSTRIL IN THE EVENING
     Route: 045
  6. SALBUTAMOL [Concomitant]
     Active Substance: ALBUTEROL
     Dosage: AS REQUIRED, AT LEAST 2?3X DAILY
  7. APIXABAN [Concomitant]
     Active Substance: APIXABAN
     Dosage: 5 MILLIGRAM, BID (1?0?1)
  8. PANTOPRAZOL                        /01263201/ [Concomitant]
     Active Substance: PANTOPRAZOLE
     Dosage: 20 MILLIGRAM, QD (0?1?0)
  9. EUTHYROX [Concomitant]
     Active Substance: LEVOTHYROXINE SODIUM
     Dosage: 75 MICROGRAM, QD (1?0?0)

REACTIONS (6)
  - Hallucination, auditory [Recovered/Resolved]
  - Agitation [Recovered/Resolved]
  - Psychomotor hyperactivity [Recovered/Resolved]
  - Restlessness [Recovered/Resolved]
  - Sleep disorder [Recovered/Resolved]
  - Feeling abnormal [Recovered/Resolved]

NARRATIVE: CASE EVENT DATE: 20201202
